FAERS Safety Report 10416968 (Version 2)
Quarter: 2014Q3

REPORT INFORMATION
  Report Type: Spontaneous
  Country: US (occurrence: US)
  Receive Date: 20140828
  Receipt Date: 20140828
  Transmission Date: 20150326
  Serious: Yes (Hospitalization, Other)
  Sender: FDA-Public Use
  Company Number: US-009507513-2008-183090-NL

PATIENT
  Sex: Female
  Weight: 77.1 kg

DRUGS (5)
  1. NUVARING [Suspect]
     Active Substance: ETHINYL ESTRADIOL\ETONOGESTREL
     Indication: CONTRACEPTION
     Dosage: CONTINUING: NO
     Dates: start: 200603, end: 20071128
  2. SULFAMETHOXAZOLE [Concomitant]
     Active Substance: SULFAMETHOXAZOLE
     Indication: PRODUCT USED FOR UNKNOWN INDICATION
  3. CLARITHROMYCIN. [Concomitant]
     Active Substance: CLARITHROMYCIN
     Indication: PRODUCT USED FOR UNKNOWN INDICATION
     Dosage: 500 MG, UNK
  4. RETIN-A [Concomitant]
     Active Substance: TRETINOIN
     Indication: PRODUCT USED FOR UNKNOWN INDICATION
     Dosage: 0.1 %, UNK
  5. METRONIDAZOLE. [Concomitant]
     Active Substance: METRONIDAZOLE
     Indication: PRODUCT USED FOR UNKNOWN INDICATION
     Dosage: 500 MG, UNK

REACTIONS (13)
  - Eczema [Unknown]
  - Dyspnoea [Unknown]
  - Pelvic pain [Recovered/Resolved]
  - Abdominal pain [Unknown]
  - Generalised anxiety disorder [Unknown]
  - Deep vein thrombosis [Recovered/Resolved]
  - Melanocytic naevus [Unknown]
  - Cystitis [Unknown]
  - Wisdom teeth removal [Unknown]
  - Ovarian cyst ruptured [Unknown]
  - Tendonitis [Unknown]
  - Urinary tract infection [Unknown]
  - Acne [Unknown]

NARRATIVE: CASE EVENT DATE: 20060618
